FAERS Safety Report 6297472-7 (Version None)
Quarter: 2009Q3

REPORT INFORMATION
  Report Type: 
  Country: None (occurrence: None)
  Receive Date: 20090805
  Receipt Date: 20090728
  Transmission Date: 20100115
  Serious: Yes (Hospitalization)
  Sender: FDA-Public Use
  Company Number: US-WYE-H10367309

PATIENT
  Sex: Female
  Weight: 55.84 kg

DRUGS (1)
  1. PRISTIQ [Suspect]
     Indication: ANXIETY
     Route: 048
     Dates: start: 20090701, end: 20090715

REACTIONS (5)
  - ANXIETY [None]
  - DECREASED APPETITE [None]
  - INSOMNIA [None]
  - SUICIDAL IDEATION [None]
  - UNEVALUABLE EVENT [None]
